FAERS Safety Report 15116132 (Version 3)
Quarter: 2018Q3

REPORT INFORMATION
  Report Type: Spontaneous
  Country: US (occurrence: US)
  Receive Date: 20180706
  Receipt Date: 20180921
  Transmission Date: 20181010
  Serious: No
  Sender: FDA-Public Use
  Company Number: US-RECKITT BENCKISER HEALTHCARE INT LIMITED-RB-96840-2017

PATIENT
  Age: 25 Year
  Sex: Female
  Weight: 45.36 kg

DRUGS (2)
  1. MUCINEX [Suspect]
     Active Substance: GUAIFENESIN
     Indication: PRODUCT USED FOR UNKNOWN INDICATION
     Dosage: TOOK (1) TABLET ABOUT 8.5 HOURS AGO BEFORE REPORTING AND AGAIN ABOUT 2.5 HOURS AGO BEFORE REPORTING
     Route: 048
     Dates: start: 20170919
  2. TYLENOL [Interacting]
     Active Substance: ACETAMINOPHEN
     Indication: MALAISE
     Dosage: UNK, PRN
     Route: 065

REACTIONS (5)
  - Drug interaction [Unknown]
  - Expired product administered [Unknown]
  - Inappropriate schedule of drug administration [Unknown]
  - Asthenia [Unknown]
  - Dizziness [Unknown]

NARRATIVE: CASE EVENT DATE: 20170920
